FAERS Safety Report 13465442 (Version 3)
Quarter: 2017Q3

REPORT INFORMATION
  Report Type: Spontaneous
  Country: US (occurrence: US)
  Receive Date: 20170421
  Receipt Date: 20170727
  Transmission Date: 20171127
  Serious: Yes (Hospitalization, Other)
  Sender: FDA-Public Use
  Company Number: US-BRISTOL-MYERS SQUIBB COMPANY-BMS-2017-011517

PATIENT
  Age: 15 Year
  Sex: Male

DRUGS (48)
  1. VANCOMYCIN [Suspect]
     Active Substance: VANCOMYCIN
     Indication: PNEUMONIA
     Dosage: 1 DF, UNK
     Route: 042
     Dates: start: 20161211, end: 20161219
  2. GUAIFENESIN. [Suspect]
     Active Substance: GUAIFENESIN
     Indication: COUGH
     Dosage: 1 DF, PRN
     Route: 048
     Dates: start: 20161209, end: 20161214
  3. FUROSEMIDE. [Suspect]
     Active Substance: FUROSEMIDE
     Indication: PULMONARY OEDEMA
     Route: 065
  4. HYDROMORPHONE [Suspect]
     Active Substance: HYDROMORPHONE
     Indication: PRODUCT USED FOR UNKNOWN INDICATION
     Dosage: 10 MG, QD
     Route: 042
     Dates: start: 20161209, end: 20161209
  5. LORAZEPAM. [Suspect]
     Active Substance: LORAZEPAM
     Indication: SEDATIVE THERAPY
     Dosage: 1 DF, PRN
     Route: 042
     Dates: start: 20161201, end: 20161218
  6. ALBUTEROL                          /00139501/ [Concomitant]
     Active Substance: ALBUTEROL
     Indication: PRODUCT USED FOR UNKNOWN INDICATION
     Dosage: 1 DF, QD
     Route: 049
     Dates: start: 20161216, end: 20161216
  7. BUPIVACAINE. [Concomitant]
     Active Substance: BUPIVACAINE
     Indication: PAIN
     Dosage: 0.25 %, QD
     Route: 042
     Dates: start: 20161129, end: 20161129
  8. ALBUMIN [Suspect]
     Active Substance: ALBUMIN HUMAN
     Indication: PRODUCT USED FOR UNKNOWN INDICATION
     Dosage: 25 %, QD
     Route: 042
     Dates: start: 20161217, end: 20161217
  9. FUROSEMIDE. [Suspect]
     Active Substance: FUROSEMIDE
     Indication: DIURETIC THERAPY
     Dosage: 1 DF, PRN
     Route: 042
     Dates: start: 20161205, end: 20161218
  10. HYDROMORPHONE [Suspect]
     Active Substance: HYDROMORPHONE
     Indication: PAIN PROPHYLAXIS
     Dosage: 0.4 MG, PRN
     Route: 042
     Dates: start: 20161129, end: 20161129
  11. LIDOCAINE. [Suspect]
     Active Substance: LIDOCAINE
     Indication: PAIN PROPHYLAXIS
     Dosage: UNK, PRN
     Route: 061
     Dates: start: 20161208, end: 20161208
  12. SPIRONOLACTONE. [Suspect]
     Active Substance: SPIRONOLACTONE
     Indication: DIURETIC THERAPY
     Dosage: 25 MG, BID
     Route: 048
     Dates: start: 20161202, end: 20161202
  13. LENALIDOMIDE [Suspect]
     Active Substance: LENALIDOMIDE
     Indication: ACUTE MYELOID LEUKAEMIA
     Dosage: 70 MG, QD
     Route: 048
     Dates: start: 20161212, end: 20161217
  14. DIPHENHYDRAMINE. [Concomitant]
     Active Substance: DIPHENHYDRAMINE
     Indication: ANTIALLERGIC THERAPY
     Dosage: 50 MG, QD
     Route: 048
     Dates: start: 20161128, end: 20161128
  15. DIPHENHYDRAMINE. [Concomitant]
     Active Substance: DIPHENHYDRAMINE
     Indication: PRODUCT USED FOR UNKNOWN INDICATION
     Dosage: 50 MG, QD
     Route: 048
     Dates: start: 20161130, end: 20161130
  16. PENTAMIDINE [Suspect]
     Active Substance: PENTAMIDINE
     Indication: INFECTION PROPHYLAXIS
     Dosage: 300 MG, QD
     Route: 065
     Dates: start: 20161212, end: 20161212
  17. ONDANSETRON [Suspect]
     Active Substance: ONDANSETRON
     Indication: PRODUCT USED FOR UNKNOWN INDICATION
     Dosage: 1 DF, UNK
     Route: 042
     Dates: start: 20161129, end: 20161201
  18. CAPHOSOL [Concomitant]
     Active Substance: CALCIUM CHLORIDE\SODIUM CHLORIDE\SODIUM PHOSPHATE, DIBASIC, ANHYDROUS\SODIUM PHOSPHATE, MONOBASIC, ANHYDROUS
     Indication: PROPHYLAXIS
     Dosage: 30 ML, PRN
     Route: 065
     Dates: start: 20160801, end: 201611
  19. CASPOFUNGIN [Suspect]
     Active Substance: CASPOFUNGIN
     Indication: ANTIFUNGAL PROPHYLAXIS
     Dosage: 50 MG, BID
     Route: 042
     Dates: start: 20161201, end: 20161218
  20. MAGNESIUM OXIDE. [Suspect]
     Active Substance: MAGNESIUM OXIDE
     Indication: HYPOMAGNESAEMIA
     Dosage: 800 MG, BID
     Route: 048
     Dates: start: 20161210, end: 20161218
  21. POTASSIUM CHLORIDE. [Suspect]
     Active Substance: POTASSIUM CHLORIDE
     Indication: HYPOKALAEMIA
     Dosage: 1 DF, PRN
     Route: 048
     Dates: start: 20161201, end: 20161215
  22. CLINDAMYCIN. [Suspect]
     Active Substance: CLINDAMYCIN
     Indication: PNEUMONIA
     Dosage: UNK
     Route: 065
     Dates: start: 20161209, end: 20161211
  23. MERCAPTOPURINE. [Concomitant]
     Active Substance: MERCAPTOPURINE
     Indication: LEUKAEMIA
     Dosage: 110 MG, QD
     Route: 048
     Dates: start: 20161218, end: 20161218
  24. HYDROXYUREA. [Suspect]
     Active Substance: HYDROXYUREA
     Indication: PRODUCT USED FOR UNKNOWN INDICATION
     Dosage: 1000 MG, BID
     Route: 048
     Dates: start: 20161213, end: 20161218
  25. CHLORHEXIDINE [Suspect]
     Active Substance: CHLORHEXIDINE
     Indication: PROPHYLAXIS
     Dosage: 10 ML, BID
     Route: 048
     Dates: start: 20161211, end: 20161217
  26. ONDANSETRON [Suspect]
     Active Substance: ONDANSETRON
     Indication: PROPHYLAXIS OF NAUSEA AND VOMITING
     Dosage: 8 MG, PRN
     Route: 048
     Dates: start: 20161203, end: 20161216
  27. CEFEPIME DIHYDROCHLORIDE MONOHYDRATE [Suspect]
     Active Substance: CEFEPIME HYDROCHLORIDE
     Indication: PNEUMONIA
     Dosage: 2000 MG, TID
     Route: 042
     Dates: start: 20161130, end: 20161219
  28. PARACETAMOL [Suspect]
     Active Substance: ACETAMINOPHEN
     Indication: PYREXIA
     Dosage: 650 MG, PRN
     Route: 048
     Dates: start: 20161129, end: 20161217
  29. PARACETAMOL [Suspect]
     Active Substance: ACETAMINOPHEN
     Indication: PRODUCT USED FOR UNKNOWN INDICATION
     Dosage: 1000 MG, PRN
     Route: 048
     Dates: start: 20161217, end: 20161218
  30. ALBUMIN [Suspect]
     Active Substance: ALBUMIN HUMAN
     Indication: FLUID IMBALANCE
     Dosage: 25 %, QD
     Route: 042
     Dates: start: 20161205, end: 20161205
  31. BACITRACIN. [Suspect]
     Active Substance: BACITRACIN
     Indication: SKIN LESION
     Dosage: UNK, BID
     Route: 061
     Dates: start: 20161208, end: 20161214
  32. BENZOCAINE. [Suspect]
     Active Substance: BENZOCAINE
     Indication: OROPHARYNGEAL PAIN
     Dosage: UNK, PRN
     Route: 048
     Dates: start: 20161208, end: 20161214
  33. CETIRIZINE [Suspect]
     Active Substance: CETIRIZINE HYDROCHLORIDE
     Indication: NASAL CONGESTION
     Dosage: 10 MG, PRN
     Route: 048
     Dates: start: 20161209, end: 20161218
  34. HEPARIN [Suspect]
     Active Substance: HEPARIN SODIUM
     Indication: CATHETER MANAGEMENT
     Dosage: 1 DF, PRN
     Route: 042
     Dates: start: 20161129, end: 20161218
  35. OXYMETAZOLINE [Suspect]
     Active Substance: OXYMETAZOLINE
     Indication: NASAL CONGESTION
     Dosage: 0.05 %, PRN
     Route: 045
     Dates: start: 20161204, end: 20161211
  36. POLYETHYLENE GLYCOL [Concomitant]
     Active Substance: POLYETHYLENE GLYCOLS
     Indication: CONSTIPATION
     Dosage: 8.5 MG, QD
     Route: 048
     Dates: start: 20161218, end: 20161218
  37. MIDAZOLAM [Concomitant]
     Active Substance: MIDAZOLAM HYDROCHLORIDE
     Indication: SEDATIVE THERAPY
     Dosage: 1 DF, UNK
     Route: 042
     Dates: start: 20161218, end: 20161219
  38. HYDROXYUREA. [Suspect]
     Active Substance: HYDROXYUREA
     Indication: PRODUCT USED FOR UNKNOWN INDICATION
     Dosage: 1000 MG, BID
     Route: 048
     Dates: start: 20161209, end: 20161211
  39. SCOPOLAMINE HCL [Suspect]
     Active Substance: SCOPOLAMINE
     Indication: PROPHYLAXIS OF NAUSEA AND VOMITING
     Dosage: UNK, PRN
     Route: 065
     Dates: start: 20161008, end: 20161218
  40. MAGNESIUM SULFATE. [Suspect]
     Active Substance: MAGNESIUM SULFATE
     Indication: HYPOMAGNESAEMIA
     Dosage: 2 G, PRN
     Route: 042
     Dates: start: 20161201, end: 20161212
  41. PENTAMIDINE [Suspect]
     Active Substance: PENTAMIDINE
     Indication: PRODUCT USED FOR UNKNOWN INDICATION
     Dosage: 300 MG, QD
     Route: 049
     Dates: start: 20161216, end: 20161216
  42. HYDROXYUREA. [Suspect]
     Active Substance: HYDROXYUREA
     Indication: LEUKAEMIA
     Dosage: 1000 MG, BID
     Route: 048
     Dates: start: 20161203, end: 20161208
  43. OXYCODONE [Suspect]
     Active Substance: OXYCODONE
     Indication: PAIN
     Dosage: 1 DF, PRN
     Route: 048
     Dates: start: 20161209, end: 20161218
  44. ALLOPURINOL. [Suspect]
     Active Substance: ALLOPURINOL
     Indication: PROPHYLAXIS
     Dosage: 200 MG, TID
     Route: 048
     Dates: start: 20161130, end: 20161218
  45. LIDOCAINE. [Suspect]
     Active Substance: LIDOCAINE
     Indication: PRODUCT USED FOR UNKNOWN INDICATION
     Dosage: 3.5 ML, QD
     Route: 058
     Dates: start: 20161208, end: 20161208
  46. POTASSIUM PHOSPHATE                /00493501/ [Suspect]
     Active Substance: POTASSIUM PHOSPHATE, DIBASIC
     Indication: HYPOPHOSPHATAEMIA
     Dosage: 15 MMOL, QD
     Route: 042
     Dates: start: 20161203, end: 20161203
  47. NALBUPHINE [Concomitant]
     Active Substance: NALBUPHINE
     Indication: ANALGESIC THERAPY
     Dosage: 1 MG, QD
     Route: 042
     Dates: start: 20161218, end: 20161218
  48. FLUCONAZOLE. [Concomitant]
     Active Substance: FLUCONAZOLE
     Indication: ANTIFUNGAL PROPHYLAXIS
     Dosage: 200 MG, QD
     Route: 048
     Dates: start: 2016, end: 20161130

REACTIONS (1)
  - Renal failure [Not Recovered/Not Resolved]

NARRATIVE: CASE EVENT DATE: 20161215
